FAERS Safety Report 10612316 (Version 1)
Quarter: 2014Q4

REPORT INFORMATION
  Report Type: Spontaneous
  Country: US (occurrence: US)
  Receive Date: 20141127
  Receipt Date: 20141127
  Transmission Date: 20150529
  Serious: Yes (Hospitalization)
  Sender: FDA-Public Use
  Company Number: US-BAUSCH-BL-2014-009005

PATIENT
  Sex: Female

DRUGS (1)
  1. XENAZINE [Suspect]
     Active Substance: TETRABENAZINE
     Indication: HUNTINGTON^S DISEASE
     Dosage: 25 MG IN THE MORNINGS AND AT NOON AND 12.5 MG AT BEDTIME
     Route: 048
     Dates: start: 20140804

REACTIONS (4)
  - Feeling abnormal [Unknown]
  - Pneumonia aspiration [Unknown]
  - Malnutrition [Unknown]
  - Hydraemia [Unknown]
